FAERS Safety Report 7183381-8 (Version None)
Quarter: 2010Q4

REPORT INFORMATION
  Report Type: 
  Country: None (occurrence: None)
  Receive Date: 20101210
  Receipt Date: 20101122
  Transmission Date: 20110411
  Serious: No
  Sender: FDA-Public Use
  Company Number: 2010-01014

PATIENT
  Age: 80 Year
  Sex: Female
  Weight: 62.5964 kg

DRUGS (19)
  1. ZICAM COLD REMEDY ORAL MIST [Suspect]
     Dosage: QD X 2 DAYS
     Dates: start: 20101121, end: 20101122
  2. MULTI-VITAMIN [Concomitant]
  3. CALCIUM WITH VITAMIN D [Concomitant]
  4. ASPIRIN [Concomitant]
  5. POTASSIUM [Concomitant]
  6. NORVASC [Concomitant]
  7. TOVIAZ [Concomitant]
  8. PROTONIX [Concomitant]
  9. CYMBALTA [Concomitant]
  10. MOBIC [Concomitant]
  11. SINGULAIR [Concomitant]
  12. FLOVENT [Concomitant]
  13. LIPITOR [Concomitant]
  14. SYNTHROID [Concomitant]
  15. ATIVAN [Concomitant]
  16. COUMADIN [Concomitant]
  17. AZOPT OPTH DROPS [Concomitant]
  18. BRIMONIDINE OPTH DROPS [Concomitant]
  19. XALATAN OPTH DROPS [Concomitant]

REACTIONS (1)
  - AGEUSIA [None]
